FAERS Safety Report 10185535 (Version 1)
Quarter: 2014Q2

REPORT INFORMATION
  Report Type: Spontaneous
  Country: US (occurrence: None)
  Receive Date: 20140520
  Receipt Date: 20140520
  Transmission Date: 20141212
  Serious: Yes (Hospitalization)
  Sender: FDA-Public Use
  Company Number: None

PATIENT
  Age: 56 Year
  Sex: Female

DRUGS (4)
  1. ISONIAZID [Suspect]
     Indication: TUBERCULOSIS
     Route: 048
     Dates: start: 20120801, end: 20121130
  2. ALLBUTEROL [Concomitant]
  3. FLUTICASONE [Concomitant]
  4. PYRIDOXINE [Concomitant]

REACTIONS (6)
  - Liver function test abnormal [None]
  - Chromaturia [None]
  - Dyspnoea [None]
  - Joint swelling [None]
  - Activated partial thromboplastin time prolonged [None]
  - Blood bilirubin increased [None]
